FAERS Safety Report 7027502-6 (Version None)
Quarter: 2010Q4

REPORT INFORMATION
  Report Type: 
  Country: None (occurrence: None)
  Receive Date: 20101004
  Receipt Date: 20100629
  Transmission Date: 20110411
  Serious: Yes (Other)
  Sender: FDA-Public Use
  Company Number: PHHY2010US31791

PATIENT
  Sex: Female
  Weight: 82 kg

DRUGS (27)
  1. RECLAST [Suspect]
     Indication: OSTEOPOROSIS
     Dosage: 5 MG, YEARLY
     Route: 042
     Dates: start: 20090310, end: 20100330
  2. RECLAST [Suspect]
     Dosage: 5 MG, YEARLY
     Route: 042
     Dates: start: 20100401
  3. CALCIUM [Concomitant]
  4. VITAMIN D3 [Concomitant]
  5. SYNTHROID [Concomitant]
     Indication: HYPOTHYROIDISM
     Dosage: 212 UG, QD
  6. ALEVE (CAPLET) [Concomitant]
     Indication: ARTHRALGIA
     Dosage: UNK
     Route: 048
  7. IBUPROFEN [Concomitant]
     Indication: ARTHRALGIA
     Dosage: UNK
     Route: 048
  8. PLAQUENIL [Concomitant]
     Indication: OSTEOARTHRITIS
     Dosage: 200 MG, QD
     Route: 048
  9. ALBUTEROL [Concomitant]
     Indication: ASTHMA
     Dosage: 2 PUFFS
  10. ASPIRIN [Concomitant]
     Dosage: 325 MG, UNK
     Route: 048
  11. CLONAZEPAM [Concomitant]
     Indication: ANXIETY
     Dosage: 0.5 MG THREE TIMES DAILY
     Route: 048
  12. HYDROMORPHONE HCL [Concomitant]
     Indication: ARTHRALGIA
     Dosage: 4 MG, TID
     Route: 048
  13. LEVOTHYROXINE SODIUM [Concomitant]
     Dosage: 0.05 MG, QD
     Route: 048
  14. LEVOTHYROXINE SODIUM [Concomitant]
     Dosage: 0.2 MG, QD
     Route: 048
  15. SENNA [Concomitant]
     Dosage: UNK
     Route: 048
  16. SERTRALINE HYDROCHLORIDE [Concomitant]
     Indication: DEPRESSION
     Dosage: 50 MG, UNK
     Route: 048
  17. MULTI-VITAMINS [Concomitant]
     Dosage: UNK
     Route: 048
  18. LOVAZA [Concomitant]
     Dosage: 1000 MG, QD
  19. NEXIUM [Concomitant]
     Indication: REFLUX OESOPHAGITIS
     Dosage: 40 MG, QD
  20. GLUCOSAMINE [Concomitant]
     Dosage: 1000 MG, QD
     Route: 048
  21. NAPROXEN [Concomitant]
     Dosage: 500 MG, BID
  22. METOPROLOL TARTRATE [Concomitant]
     Indication: PALPITATIONS
     Dosage: 25 MG, QD
  23. MORPHINE [Concomitant]
     Indication: PAIN
     Dosage: 100 MG, UNK
  24. DICLOFENAC SODIUM [Concomitant]
     Dosage: 100 MG, BID
  25. TYLENOL [Concomitant]
     Indication: MYALGIA
     Dosage: 1000 MG, BID
  26. CELEBREX [Concomitant]
     Dosage: 200 MG, BID
  27. VOLTAREN [Concomitant]
     Dosage: 100 UNK, BID

REACTIONS (27)
  - ABDOMINAL DISCOMFORT [None]
  - ARTHRALGIA [None]
  - BACK PAIN [None]
  - CHILLS [None]
  - CONSTIPATION [None]
  - CONTUSION [None]
  - COUGH [None]
  - DIARRHOEA HAEMORRHAGIC [None]
  - DYSGEUSIA [None]
  - FATIGUE [None]
  - HIP ARTHROPLASTY [None]
  - HYPERACUSIS [None]
  - MUSCULOSKELETAL STIFFNESS [None]
  - MYALGIA [None]
  - NAUSEA [None]
  - NIGHT SWEATS [None]
  - PAIN IN EXTREMITY [None]
  - PAIN IN JAW [None]
  - PAINFUL RESPIRATION [None]
  - PALPITATIONS [None]
  - PAROSMIA [None]
  - PYREXIA [None]
  - SOMNOLENCE [None]
  - TELANGIECTASIA [None]
  - TOOTHACHE [None]
  - VISUAL IMPAIRMENT [None]
  - VOMITING [None]
